FAERS Safety Report 5675048-X (Version None)
Quarter: 2008Q2

REPORT INFORMATION
  Report Type: 
  Country: None (occurrence: None)
  Receive Date: 20080303
  Receipt Date: 20071126
  Transmission Date: 20081010
  Serious: Yes (Life-Threatening, Hospitalization, Other)
  Sender: FDA-Public Use
  Company Number: RB-8660-2007

PATIENT
  Age: 18 Month
  Sex: Male

DRUGS (1)
  1. SUBOXONE [Suspect]
     Indication: ACCIDENTAL EXPOSURE
     Dosage: 4 MG TOTAL INFANT TOOK ONLY 1/2 OF A TABLE
     Dates: start: 20071118, end: 20071118

REACTIONS (2)
  - ACCIDENTAL EXPOSURE [None]
  - RESPIRATORY ARREST [None]
